FAERS Safety Report 5725864-0 (Version None)
Quarter: 2008Q2

REPORT INFORMATION
  Report Type: 
  Country: None (occurrence: None)
  Receive Date: 20080429
  Receipt Date: 20080414
  Transmission Date: 20081010
  Serious: Yes (Other)
  Sender: FDA-Public Use
  Company Number: 026358

PATIENT
  Age: 21 Year
  Sex: Male

DRUGS (2)
  1. CLARAVIS [Suspect]
     Indication: ACNE CYSTIC
     Dosage: 40 MG, QD, ORAL; 60 MG, QD, ORAL
     Route: 048
     Dates: start: 20080303, end: 20080410
  2. CLARAVIS [Suspect]
     Indication: ACNE CYSTIC
     Dosage: 40 MG, QD, ORAL; 60 MG, QD, ORAL
     Route: 048
     Dates: start: 20080411

REACTIONS (3)
  - DRUG EXPOSURE DURING PREGNANCY [None]
  - PREGNANCY OF PARTNER [None]
  - TRANSMISSION OF DRUG VIA SEMEN [None]
